FAERS Safety Report 19888185 (Version 2)
Quarter: 2021Q4

REPORT INFORMATION
  Report Type: Spontaneous
  Country: US (occurrence: US)
  Receive Date: 20210928
  Receipt Date: 20211002
  Transmission Date: 20220303
  Serious: Yes (Other)
  Sender: FDA-Public Use
  Company Number: US-OREXO US, INC.-ORE202109-000046

PATIENT
  Sex: Female

DRUGS (1)
  1. ZUBSOLV [Suspect]
     Active Substance: BUPRENORPHINE HYDROCHLORIDE\NALOXONE HYDROCHLORIDE
     Indication: Dependence
     Dosage: 5.7 MG/1.4 MG; 1 TABLET IN MORNING AND HALF TABLET IN EVENING (FROM 3-4 YEARS)

REACTIONS (3)
  - Suicidal ideation [Unknown]
  - Intentional dose omission [Unknown]
  - Wrong technique in product usage process [Unknown]
